FAERS Safety Report 12431661 (Version 3)
Quarter: 2016Q2

REPORT INFORMATION
  Report Type: Spontaneous
  Country: IT (occurrence: IT)
  Receive Date: 20160603
  Receipt Date: 20160628
  Transmission Date: 20160815
  Serious: Yes (Hospitalization, Disabling, Other)
  Sender: FDA-Public Use
  Company Number: IT-TEVA-664711ACC

PATIENT
  Age: 72 Year
  Sex: Female

DRUGS (5)
  1. TRETINOIN. [Suspect]
     Active Substance: TRETINOIN
     Indication: ACUTE PROMYELOCYTIC LEUKAEMIA
     Dosage: CYCLICAL
     Route: 065
  2. THIAMINE. [Concomitant]
     Active Substance: THIAMINE
  3. DEXAMETHASONE. [Concomitant]
     Active Substance: DEXAMETHASONE
     Route: 065
  4. FUROSEMIDE. [Concomitant]
     Active Substance: FUROSEMIDE
     Route: 065
  5. ARSENIC TRIOXIDE [Suspect]
     Active Substance: ARSENIC TRIOXIDE
     Indication: ACUTE PROMYELOCYTIC LEUKAEMIA
     Dosage: 10 MILLIGRAM DAILY;
     Route: 065

REACTIONS (12)
  - Oedema peripheral [Unknown]
  - Disorientation [Recovered/Resolved]
  - Acute promyelocytic leukaemia differentiation syndrome [Unknown]
  - Vitamin B1 decreased [Unknown]
  - Pericardial effusion [Unknown]
  - Acute motor-sensory axonal neuropathy [Recovering/Resolving]
  - Language disorder [Unknown]
  - Blood creatinine increased [Recovering/Resolving]
  - Pleural effusion [Unknown]
  - Hypernatraemia [Recovered/Resolved]
  - Insomnia [Unknown]
  - Cognitive disorder [Recovered/Resolved]
